FAERS Safety Report 5105016-8 (Version None)
Quarter: 2006Q3

REPORT INFORMATION
  Report Type: 
  Country: None (occurrence: None)
  Receive Date: 20060911
  Receipt Date: 20060824
  Transmission Date: 20061208
  Serious: No
  Sender: FDA-Public Use
  Company Number: US200608005824

PATIENT
  Sex: Female

DRUGS (4)
  1. CYMBALTA [Suspect]
     Dosage: 60 MG, UNK, UNK
     Dates: start: 20060715, end: 20060809
  2. LAMICTAL [Concomitant]
  3. RITALIN [Concomitant]
  4. WELLBUTRIN SR [Concomitant]

REACTIONS (1)
  - HEPATIC ENZYME INCREASED [None]
